FAERS Safety Report 24767747 (Version 1)
Quarter: 2024Q4

REPORT INFORMATION
  Report Type: Spontaneous
  Country: GB (occurrence: GB)
  Receive Date: 20241223
  Receipt Date: 20241223
  Transmission Date: 20250115
  Serious: Yes (Other)
  Sender: ELI LILLY AND COMPANY
  Company Number: None

PATIENT
  Age: 47 Year
  Sex: Female
  Weight: 88 kg

DRUGS (2)
  1. MOUNJARO [Suspect]
     Active Substance: TIRZEPATIDE
     Indication: Weight control
     Dosage: UNK UNK, WEEKLY (1/W)
     Route: 065
     Dates: start: 202408
  2. MOUNJARO [Suspect]
     Active Substance: TIRZEPATIDE
     Dosage: 7.5 MG, WEEKLY (1/W)
     Route: 065

REACTIONS (3)
  - Medication error [Unknown]
  - Back pain [Not Recovered/Not Resolved]
  - Protein urine present [Unknown]
